FAERS Safety Report 24622787 (Version 2)
Quarter: 2024Q4

REPORT INFORMATION
  Report Type: Report from Study
  Country: US (occurrence: US)
  Receive Date: 20241115
  Receipt Date: 20241119
  Transmission Date: 20250115
  Serious: Yes (Hospitalization)
  Sender: UCB
  Company Number: US-UCBSA-2024059112

PATIENT
  Age: 13 Year
  Sex: Male
  Weight: 47 kg

DRUGS (3)
  1. FINTEPLA [Suspect]
     Active Substance: FENFLURAMINE
     Indication: Lennox-Gastaut syndrome
     Dosage: 5.9 MILLILITER, 2X/DAY (BID)
  2. FINTEPLA [Suspect]
     Active Substance: FENFLURAMINE
     Dosage: 13 MG BY G TUBE IN THE MORNING AND 13 MG IN THE EVENUNG
  3. FINTEPLA [Suspect]
     Active Substance: FENFLURAMINE
     Dosage: 26 MILLIGRAM/DAY

REACTIONS (3)
  - Tracheitis [Not Recovered/Not Resolved]
  - Pneumonia [Not Recovered/Not Resolved]
  - Hospitalisation [Not Recovered/Not Resolved]

NARRATIVE: CASE EVENT DATE: 20241104
